FAERS Safety Report 6891493-9 (Version None)
Quarter: 2010Q3

REPORT INFORMATION
  Report Type: 
  Country: None (occurrence: None)
  Receive Date: 20100731
  Receipt Date: 20070821
  Transmission Date: 20110219
  Serious: No
  Sender: FDA-Public Use
  Company Number: US-PFIZER INC-2007034939

PATIENT

DRUGS (4)
  1. NORVASC [Suspect]
     Indication: HYPERTENSION
     Dates: start: 20070205, end: 20070322
  2. METOPROLOL TARTRATE [Suspect]
     Indication: HYPERTENSION
     Dates: start: 20070205
  3. WARFARIN SODIUM [Suspect]
     Indication: DEEP VEIN THROMBOSIS
     Dates: start: 20070203
  4. ERYTHROMYCIN [Concomitant]

REACTIONS (3)
  - GINGIVAL HYPERPLASIA [None]
  - GINGIVAL INFECTION [None]
  - HYPERSENSITIVITY [None]
